FAERS Safety Report 5445789-8 (Version None)
Quarter: 2007Q3

REPORT INFORMATION
  Report Type: 
  Country: None (occurrence: None)
  Receive Date: 20070904
  Receipt Date: 20070820
  Transmission Date: 20080115
  Serious: Yes (Life-Threatening, Hospitalization)
  Sender: FDA-Public Use
  Company Number: TPG2007A00524

PATIENT
  Age: 70 Year
  Sex: Male

DRUGS (11)
  1. COMPETACT (PIOGLITAZONE HYDROCHLORIDE,METFORMIN HYDROCHLORIDE) [Suspect]
     Indication: TYPE 2 DIABETES MELLITUS
     Dosage: 15 MG PIOGLITAZONE / 850 MG METFORMIN PER ORAL
     Route: 048
     Dates: start: 20070509, end: 20070711
  2. METFORMIN HCL [Concomitant]
  3. METOPROLOL TARTRATE [Concomitant]
  4. ENALAPRIL (ENALAPRIL) [Concomitant]
  5. ISOSORBIDE DINITRATE [Concomitant]
  6. ACETYLSALICYLIC ACID (ACETYSALICYLIC ACID) [Concomitant]
  7. PRAVASTATIN [Concomitant]
  8. ALLOPURINOL [Concomitant]
  9. ALVESCO (OTHER ANTI-ASTHMATICS, INHALANTS) [Concomitant]
  10. SPIRIVA [Concomitant]
  11. OXIS (FORMOTEROL) [Concomitant]

REACTIONS (8)
  - ANGIOEDEMA [None]
  - CIRCULATORY COLLAPSE [None]
  - EMPHYSEMA [None]
  - PNEUMONIA [None]
  - PULMONARY FIBROSIS [None]
  - PULMONARY HYPERTENSION [None]
  - RESPIRATORY TRACT INFECTION [None]
  - WEIGHT INCREASED [None]
